FAERS Safety Report 7395192-9 (Version None)
Quarter: 2011Q2

REPORT INFORMATION
  Report Type: 
  Country: None (occurrence: None)
  Receive Date: 20110405
  Receipt Date: 20110401
  Transmission Date: 20111010
  Serious: Yes (Life-Threatening, Hospitalization)
  Sender: FDA-Public Use
  Company Number: US-GENZYME-CAMP-1001282

PATIENT
  Sex: Female
  Weight: 77 kg

DRUGS (5)
  1. PROGRAF [Concomitant]
     Indication: RENAL TRANSPLANT
     Dosage: 3 MG
     Route: 065
     Dates: start: 20080122
  2. PREDNISONE [Concomitant]
     Indication: PRODUCT USED FOR UNKNOWN INDICATION
     Dosage: 5 MG, QD
     Route: 065
     Dates: start: 20080123
  3. CAMPATH [Suspect]
     Indication: RENAL TRANSPLANT
     Dosage: 30 MG, ONCE
     Route: 065
     Dates: start: 20080122, end: 20080122
  4. STEROIDS [Suspect]
     Indication: COMPLICATIONS OF TRANSPLANT SURGERY
     Dosage: 5 MG/DAY, QD
     Route: 065
     Dates: start: 20080123
  5. CELLCEPT [Concomitant]
     Indication: RENAL TRANSPLANT
     Dosage: 500 MG, BID
     Route: 065
     Dates: start: 20080123

REACTIONS (1)
  - EMPHYSEMATOUS PYELONEPHRITIS [None]
